FAERS Safety Report 12413203 (Version 4)
Quarter: 2016Q3

REPORT INFORMATION
  Report Type: Report from Study
  Country: US (occurrence: US)
  Receive Date: 20160527
  Receipt Date: 20160819
  Transmission Date: 20161109
  Serious: Yes (Hospitalization, Other)
  Sender: FDA-Public Use
  Company Number: US-GILEAD-2016-0215934

PATIENT
  Age: 53 Year
  Sex: Female

DRUGS (1)
  1. AMBRISENTAN [Suspect]
     Active Substance: AMBRISENTAN
     Indication: PRODUCT USED FOR UNKNOWN INDICATION
     Dosage: 10 MG, QD
     Route: 065
     Dates: start: 20160205

REACTIONS (17)
  - Pulmonary fibrosis [Unknown]
  - Presyncope [Unknown]
  - Dilatation ventricular [Not Recovered/Not Resolved]
  - Dizziness [Unknown]
  - Cardiac failure congestive [Not Recovered/Not Resolved]
  - Pulmonary arterial hypertension [Not Recovered/Not Resolved]
  - Cardiomegaly [Unknown]
  - Dyspnoea [Unknown]
  - Anaemia [Unknown]
  - Hypotension [Unknown]
  - Acute kidney injury [Unknown]
  - Gastrooesophageal reflux disease [Not Recovered/Not Resolved]
  - Scleroderma [Unknown]
  - Dehydration [Unknown]
  - Anal incontinence [Unknown]
  - Heart rate increased [Not Recovered/Not Resolved]
  - Palpitations [Unknown]

NARRATIVE: CASE EVENT DATE: 20160525
